FAERS Safety Report 9524600 (Version 2)
Quarter: 2013Q3

REPORT INFORMATION
  Report Type: Report from Study
  Country: CA (occurrence: CA)
  Receive Date: 20130916
  Receipt Date: 20130930
  Transmission Date: 20140515
  Serious: Yes (Death, Other)
  Sender: FDA-Public Use
  Company Number: PHHY2013CA101850

PATIENT
  Sex: Female

DRUGS (7)
  1. ACLASTA [Suspect]
     Indication: OSTEOPOROSIS
     Dosage: 5 MG PER YEAR
     Route: 042
     Dates: start: 20091207
  2. ACLASTA [Suspect]
     Dosage: 5 MG PER YEAR
     Route: 042
     Dates: start: 20101213
  3. ACLASTA [Suspect]
     Dosage: 5 MG PER YEAR
     Route: 042
     Dates: start: 20111210
  4. ACLASTA [Suspect]
     Dosage: 5 MG PER YEAR
     Route: 042
     Dates: start: 20121212
  5. EXELON PATCH [Suspect]
     Indication: DEMENTIA
     Dosage: 9.5 MG, UNK
     Route: 062
     Dates: start: 200903
  6. COUMADIN//WARFARIN SODIUM [Concomitant]
     Indication: ATRIAL FIBRILLATION
     Dosage: UNK UKN, UNK
  7. ANTIHYPERTENSIVE DRUGS [Concomitant]
     Dosage: UNK UKN, UNK

REACTIONS (12)
  - Cerebrovascular accident [Fatal]
  - Motor dysfunction [Fatal]
  - Speech disorder [Fatal]
  - Aphasia [Fatal]
  - Confusional state [Fatal]
  - Cerebral atrophy [Unknown]
  - Cerebellar atrophy [Unknown]
  - Central nervous system lesion [Unknown]
  - Cerebral ischaemia [Unknown]
  - White blood cell disorder [Unknown]
  - Nervous system disorder [Unknown]
  - Blood urine present [Unknown]
